FAERS Safety Report 17882720 (Version 1)
Quarter: 2020Q2

REPORT INFORMATION
  Report Type: Report from Study
  Country: FR (occurrence: FR)
  Receive Date: 20200611
  Receipt Date: 20200611
  Transmission Date: 20200714
  Serious: Yes (Hospitalization)
  Sender: FDA-Public Use
  Company Number: FR-ROCHE-2616413

PATIENT
  Age: 63 Year
  Sex: Male

DRUGS (5)
  1. LOXEN [NICARDIPINE HYDROCHLORIDE] [Concomitant]
     Active Substance: NICARDIPINE HYDROCHLORIDE
     Indication: MANTLE CELL LYMPHOMA
  2. DHAP [Concomitant]
     Active Substance: CISPLATIN\CYTARABINE\DEXAMETHASONE
  3. BEAM [Concomitant]
     Active Substance: SODIUM FLUORIDE
  4. AMOXICILLIN. [Concomitant]
     Active Substance: AMOXICILLIN
  5. OBINUTUZUMAB. [Suspect]
     Active Substance: OBINUTUZUMAB
     Indication: MANTLE CELL LYMPHOMA
     Dosage: ON 06/APR/2020, HE RECEIVED RECENT DOSE OF OBINUTUZUMAB,
     Route: 042
     Dates: start: 20171117

REACTIONS (2)
  - Pneumonia [Recovered/Resolved]
  - Acute respiratory failure [Recovered/Resolved]

NARRATIVE: CASE EVENT DATE: 20200303
